FAERS Safety Report 8458745-2 (Version None)
Quarter: 2012Q2

REPORT INFORMATION
  Report Type: 
  Country: None (occurrence: None)
  Receive Date: 20120622
  Receipt Date: 20120620
  Transmission Date: 20120825
  Serious: No
  Sender: FDA-Public Use
  Company Number: US-TEVA-344414USA

PATIENT
  Sex: Female
  Weight: 28.148 kg

DRUGS (1)
  1. COPAXONE [Suspect]

REACTIONS (2)
  - EXPOSURE DURING BREAST FEEDING [None]
  - ARTHRALGIA [None]
